FAERS Safety Report 12963113 (Version 1)
Quarter: 2016Q4

REPORT INFORMATION
  Report Type: Report from Study
  Country: US (occurrence: US)
  Receive Date: 20161122
  Receipt Date: 20161122
  Transmission Date: 20170207
  Serious: Yes (Hospitalization)
  Sender: FDA-Public Use
  Company Number: US-BIOGEN-2012BI037970

PATIENT
  Age: 65 Year
  Sex: Female

DRUGS (2)
  1. AVONEX [Suspect]
     Active Substance: INTERFERON BETA-1A
     Route: 030
     Dates: start: 20070709
  2. AVONEX [Suspect]
     Active Substance: INTERFERON BETA-1A
     Indication: MULTIPLE SCLEROSIS
     Route: 030
     Dates: start: 2006

REACTIONS (5)
  - Trigeminal neuralgia [Not Recovered/Not Resolved]
  - Limb injury [Unknown]
  - Exostosis [Recovered/Resolved]
  - Bursa disorder [Recovered/Resolved]
  - Ligament injury [Recovered/Resolved]

NARRATIVE: CASE EVENT DATE: 2011
